FAERS Safety Report 4782627-0 (Version None)
Quarter: 2005Q3

REPORT INFORMATION
  Report Type: 
  Country: None (occurrence: None)
  Receive Date: 20050929
  Receipt Date: 20050509
  Transmission Date: 20060218
  Serious: Yes (Hospitalization, Disabling)
  Sender: FDA-Public Use
  Company Number: 404439

PATIENT
  Age: 40 Year
  Sex: Male

DRUGS (4)
  1. COREG [Suspect]
     Route: 048
     Dates: start: 20050501, end: 20050508
  2. ASPIRIN [Concomitant]
  3. VASOTEC [Concomitant]
  4. ZOCOR [Concomitant]

REACTIONS (1)
  - HYPOGLYCAEMIA [None]
